FAERS Safety Report 8335166-4 (Version None)
Quarter: 2012Q2

REPORT INFORMATION
  Report Type: 
  Country: None (occurrence: None)
  Receive Date: 20120503
  Receipt Date: 20120423
  Transmission Date: 20120825
  Serious: Yes (Other)
  Sender: FDA-Public Use
  Company Number: US-JNJFOC-20120411834

PATIENT
  Age: 76 Year
  Sex: Female
  Weight: 65.77 kg

DRUGS (10)
  1. FUROSEMIDE [Concomitant]
     Indication: FLUID RETENTION
     Dosage: 1 TIMES DAILY OR EVERY OTHER DAY, FOR 15 PLUS YEARS
     Route: 065
  2. FAMOTIDINE [Concomitant]
     Indication: DYSPEPSIA
     Dosage: FOR 2 YEARS
     Route: 065
  3. MULTI-VITAMIN [Concomitant]
     Indication: ROUTINE HEALTH MAINTENANCE
     Dosage: 1 TO 2 TIMES DAILY
     Route: 065
  4. COUMADIN [Concomitant]
     Dosage: 3 DAYS PER WEEK
     Route: 065
     Dates: start: 20090101
  5. BENAZEPRIL HYDROCHLORIDE [Concomitant]
     Indication: HYPERTENSION
     Dosage: 1 TO 2 TIMES DAILY
     Route: 065
  6. ACETAMINOPHEN [Suspect]
     Indication: MUSCULOSKELETAL STIFFNESS
     Dosage: HALF A PILL TWO TIMES DAILY FOR ABOUT 6 WEEKS
     Route: 048
     Dates: start: 20120101, end: 20120418
  7. COUMADIN [Concomitant]
     Indication: ANTICOAGULANT THERAPY
     Dosage: 4 DAYS PER WEEK
     Route: 065
     Dates: start: 20090101
  8. ACETAMINOPHEN [Suspect]
     Indication: ARTHRITIS
     Dosage: HALF A PILL TWO TIMES DAILY FOR ABOUT 6 WEEKS
     Route: 048
     Dates: start: 20120101, end: 20120418
  9. CARVEDILOL [Concomitant]
     Indication: HYPERTENSION
     Dosage: 1 TO 2 TIMES DAILY, FOR 2 TO 3 YEARS
     Route: 065
  10. POTASSIUM CHLORIDE [Concomitant]
     Indication: ELECTROLYTE SUBSTITUTION THERAPY
     Route: 065

REACTIONS (3)
  - WRONG TECHNIQUE IN DRUG USAGE PROCESS [None]
  - INCREASED TENDENCY TO BRUISE [None]
  - DRUG LEVEL INCREASED [None]
